FAERS Safety Report 20731413 (Version 1)
Quarter: 2022Q2

REPORT INFORMATION
  Report Type: Spontaneous
  Country: FR (occurrence: FR)
  Receive Date: 20220420
  Receipt Date: 20220420
  Transmission Date: 20220721
  Serious: Yes (Other)
  Sender: FDA-Public Use
  Company Number: FR-INSUD PHARMA-2204FR01457

PATIENT

DRUGS (2)
  1. ELIFEMME [Suspect]
     Active Substance: ETHINYL ESTRADIOL\LEVONORDEFRIN
     Indication: Contraception
     Dosage: 50 MCG/30 MCG FOR 6 DAYS, 75 MCG/40 MCG FOR 5 DAYS, 125 MCG/30 MCG FOR 10 DAYS
     Route: 065
  2. CYPROTERONE ACETATE [Suspect]
     Active Substance: CYPROTERONE ACETATE
     Indication: Hirsutism
     Dosage: 50 MG/DAY
     Route: 065

REACTIONS (1)
  - Meningioma [Recovering/Resolving]
